FAERS Safety Report 6636237-0 (Version None)
Quarter: 2010Q1

REPORT INFORMATION
  Report Type: 
  Country: None (occurrence: None)
  Receive Date: 20100316
  Receipt Date: 20100304
  Transmission Date: 20100710
  Serious: Yes (Other)
  Sender: FDA-Public Use
  Company Number: SE-PFIZER INC-2010027919

PATIENT
  Sex: Male

DRUGS (2)
  1. CAVERJECT DUAL [Suspect]
     Dosage: UNK
     Dates: start: 20060101
  2. VIAGRA [Suspect]
     Dosage: UNK

REACTIONS (2)
  - DERMATITIS ALLERGIC [None]
  - VASODILATATION [None]
